FAERS Safety Report 6580171-1 (Version None)
Quarter: 2010Q1

REPORT INFORMATION
  Report Type: 
  Country: None (occurrence: None)
  Receive Date: 20100212
  Receipt Date: 20100205
  Transmission Date: 20100710
  Serious: Yes (Hospitalization)
  Sender: FDA-Public Use
  Company Number: US-WATSON-2010-01613

PATIENT
  Age: 56 Year
  Sex: Male

DRUGS (2)
  1. PROPRANOLOL [Suspect]
     Indication: HYPERTENSION
     Dosage: 320 MG, DAILY
  2. PROPRANOLOL [Suspect]
     Indication: ANGINA PECTORIS

REACTIONS (2)
  - RECTAL HAEMORRHAGE [None]
  - SCLEROSING ENCAPSULATING PERITONITIS [None]
